FAERS Safety Report 5141002-X (Version None)
Quarter: 2006Q4

REPORT INFORMATION
  Report Type: 
  Country: None (occurrence: None)
  Receive Date: 20061026
  Receipt Date: 20061013
  Transmission Date: 20070319
  Serious: Yes (Hospitalization)
  Sender: FDA-Public Use
  Company Number: 2006125422

PATIENT
  Age: 72 Year
  Sex: Male

DRUGS (8)
  1. VFEND [Suspect]
     Indication: BRONCHOPULMONARY ASPERGILLOSIS
     Dosage: 600 MG (300 MG, FREQUENCY:  BID), ORAL
     Route: 048
     Dates: start: 20060128, end: 20060524
  2. OMEPRAZOLE [Suspect]
     Indication: PROPHYLAXIS AGAINST GASTROINTESTINAL ULCER
     Dosage: ORAL
     Route: 048
     Dates: start: 20060128, end: 20060524
  3. VALACYCLOVIR [Suspect]
     Indication: DRUG USE FOR UNKNOWN INDICATION
     Dosage: 1000 MG (500 MG, FREQUENCY:  BID), ORAL
     Route: 048
     Dates: start: 20060128, end: 20060524
  4. PREDNISONE TAB [Suspect]
     Indication: AGRANULOCYTOSIS
     Dosage: ORAL
     Route: 048
     Dates: start: 20060128, end: 20060504
  5. BISOPROLOL FUMARATE [Concomitant]
  6. VALSARTAN [Concomitant]
  7. ACETYLSALICYLATE LYSINE (ACETYLSALICYLATE LYSINE) [Concomitant]
  8. PENTAMIDINE ISETHIONATE [Concomitant]

REACTIONS (6)
  - AGRANULOCYTOSIS [None]
  - BLOOD DISORDER [None]
  - COORDINATION ABNORMAL [None]
  - FATIGUE [None]
  - HYPOREFLEXIA [None]
  - POLYNEUROPATHY [None]
